FAERS Safety Report 13768399 (Version 1)
Quarter: 2017Q3

REPORT INFORMATION
  Report Type: Report from Study
  Country: None (occurrence: FR)
  Receive Date: 20170719
  Receipt Date: 20170719
  Transmission Date: 20171127
  Serious: Yes (Other)
  Sender: FDA-Public Use
  Company Number: FR-ABBVIE-17K-056-2040941-00

PATIENT
  Age: 54 Year
  Sex: Female

DRUGS (1)
  1. HUMIRA [Suspect]
     Active Substance: ADALIMUMAB
     Indication: ANKYLOSING SPONDYLITIS
     Route: 058

REACTIONS (12)
  - Fatigue [Recovered/Resolved]
  - Renal colic [Not Recovered/Not Resolved]
  - Vertigo [Unknown]
  - Abdominal pain lower [Not Recovered/Not Resolved]
  - Depression [Unknown]
  - Anxiety [Unknown]
  - Back pain [Recovered/Resolved]
  - Tinnitus [Recovered/Resolved]
  - Malaise [Unknown]
  - Anaemia [Unknown]
  - Dizziness [Unknown]
  - Facial bones fracture [Unknown]

NARRATIVE: CASE EVENT DATE: 20170703
